FAERS Safety Report 5160762-5 (Version None)
Quarter: 2006Q4

REPORT INFORMATION
  Report Type: 
  Country: None (occurrence: None)
  Receive Date: 20060919
  Receipt Date: 20060609
  Transmission Date: 20070319
  Serious: No
  Sender: FDA-Public Use
  Company Number: 2006US001307

PATIENT
  Age: 71 Year
  Sex: Female

DRUGS (4)
  1. VESICARE [Suspect]
     Indication: MICTURITION URGENCY
     Dosage: 5 MG ORAL
     Route: 048
     Dates: start: 20060120
  2. MESTINON [Concomitant]
  3. MOBIC [Concomitant]
  4. LYRICA [Concomitant]

REACTIONS (2)
  - MYASTHENIA GRAVIS [None]
  - VISION BLURRED [None]
